FAERS Safety Report 7556478-8 (Version None)
Quarter: 2011Q2

REPORT INFORMATION
  Report Type: 
  Country: None (occurrence: None)
  Receive Date: 20110610
  Receipt Date: 20110606
  Transmission Date: 20111010
  Serious: Yes (Hospitalization)
  Sender: FDA-Public Use
  Company Number: 2011-IT-0012

PATIENT
  Sex: Male

DRUGS (2)
  1. FENTANYL [Suspect]
     Indication: PRODUCT USED FOR UNKNOWN INDICATION
  2. UNKNOWN MEDICINAL PRODUCT(S): FORMULATION UNKNOWN [Suspect]

REACTIONS (2)
  - LIP OEDEMA [None]
  - RASH [None]
